FAERS Safety Report 17991239 (Version 1)
Quarter: 2020Q3

REPORT INFORMATION
  Report Type: Spontaneous
  Country: US (occurrence: US)
  Receive Date: 20200707
  Receipt Date: 20200707
  Transmission Date: 20201103
  Serious: No
  Sender: FDA-Public Use
  Company Number: US-BAUSCH-BL-2020-017629

PATIENT
  Age: 82 Year
  Sex: Female

DRUGS (3)
  1. BESIVANCE [Suspect]
     Active Substance: BESIFLOXACIN
     Indication: CONJUNCTIVITIS
     Dosage: IN LEFT EYE
     Route: 047
     Dates: start: 20200618
  2. ARTIFICIAL TEARS [Concomitant]
     Active Substance: GLYCERIN\HYPROMELLOSES\POLYETHYLENE GLYCOL 400
     Indication: PRODUCT USED FOR UNKNOWN INDICATION
  3. LOTEMAX [Suspect]
     Active Substance: LOTEPREDNOL ETABONATE
     Indication: CONJUNCTIVITIS
     Dosage: ONE DROP INTO EACH OF HER EYES DAILY
     Route: 047
     Dates: start: 20200618

REACTIONS (1)
  - Eye discharge [Recovered/Resolved]

NARRATIVE: CASE EVENT DATE: 20200618
